FAERS Safety Report 16141135 (Version 3)
Quarter: 2019Q3

REPORT INFORMATION
  Report Type: Spontaneous
  Country: US (occurrence: US)
  Receive Date: 20190401
  Receipt Date: 20190919
  Transmission Date: 20191004
  Serious: Yes (Other)
  Sender: FDA-Public Use
  Company Number: US-PFIZER INC-2019132401

PATIENT
  Age: 72 Year
  Sex: Female

DRUGS (1)
  1. XELJANZ [Suspect]
     Active Substance: TOFACITINIB CITRATE
     Dosage: 5 MG, UNK
     Dates: start: 20190302

REACTIONS (15)
  - Rash [Unknown]
  - Depressed mood [Unknown]
  - Peroneal nerve palsy [Unknown]
  - Cellulitis [Unknown]
  - Anaemia [Unknown]
  - Insomnia [Unknown]
  - Asthenia [Unknown]
  - Arthritis [Unknown]
  - Pain in extremity [Unknown]
  - Acarodermatitis [Unknown]
  - Fatigue [Unknown]
  - Osteoporosis [Unknown]
  - Musculoskeletal disorder [Unknown]
  - Fluid retention [Unknown]
  - Pain [Unknown]
